FAERS Safety Report 8247023 (Version 2)
Quarter: 2012Q4

REPORT INFORMATION
  Report Type: 
  Country: GB (occurrence: GB)
  Receive Date: 20111116
  Receipt Date: 20121009
  Transmission Date: 20130627
  Serious: Yes (Other)
  Sender: FDA-Public Use
  Company Number: GB-TEVA-309044ISR

PATIENT
  Age: 39 Year
  Sex: Female

DRUGS (1)
  1. TRIMETHOPRIM [Suspect]
     Indication: URINARY TRACT INFECTION
     Route: 048
     Dates: start: 20111006, end: 20111007

REACTIONS (2)
  - Anxiety [Recovered/Resolved]
  - Abdominal discomfort [Recovered/Resolved]
